FAERS Safety Report 6742602-3 (Version None)
Quarter: 2010Q2

REPORT INFORMATION
  Report Type: 
  Country: None (occurrence: None)
  Receive Date: 20100526
  Receipt Date: 20100521
  Transmission Date: 20101027
  Serious: Yes (Death)
  Sender: FDA-Public Use
  Company Number: JP-ABBOTT-10P-087-0646739-00

PATIENT
  Age: 76 Year
  Sex: Male

DRUGS (3)
  1. LEUPROLIDE ACETATE [Suspect]
     Indication: PROSTATE CANCER STAGE II
     Route: 058
     Dates: start: 20060817, end: 20061109
  2. LEUPROLIDE ACETATE [Suspect]
     Route: 058
     Dates: start: 20070427, end: 20070720
  3. LEUPROLIDE ACETATE [Suspect]
     Dates: start: 20060331, end: 20060719

REACTIONS (1)
  - PNEUMONIA ASPIRATION [None]
